FAERS Safety Report 14392761 (Version 1)
Quarter: 2018Q1

REPORT INFORMATION
  Report Type: Spontaneous
  Country: US (occurrence: US)
  Receive Date: 20180113
  Receipt Date: 20180113
  Transmission Date: 20180509
  Serious: Yes (Other)
  Sender: FDA-Public Use
  Company Number: None

PATIENT
  Age: 44 Year
  Sex: Female

DRUGS (7)
  1. DULOXETINE HCL DR 30 MG CAP [Suspect]
     Active Substance: DULOXETINE HYDROCHLORIDE
     Indication: DEPRESSION
     Dosage: ?          QUANTITY:3 CAPSULE(S);?
     Route: 048
     Dates: start: 20131231
  2. MULTIVITAMIN [Concomitant]
     Active Substance: VITAMINS
  3. MONTELUCAST [Concomitant]
     Active Substance: MONTELUKAST SODIUM
  4. IBUPROFEN. [Concomitant]
     Active Substance: IBUPROFEN
  5. AZELASTINE. [Concomitant]
     Active Substance: AZELASTINE HYDROCHLORIDE
  6. DICLOFENAC [Concomitant]
     Active Substance: DICLOFENAC
  7. DULOXETINE HCL DR 30 MG CAP [Suspect]
     Active Substance: DULOXETINE HYDROCHLORIDE
     Indication: PAIN
     Dosage: ?          QUANTITY:3 CAPSULE(S);?
     Route: 048
     Dates: start: 20131231

REACTIONS (4)
  - Drug effect decreased [None]
  - Paraesthesia [None]
  - Drug effect incomplete [None]
  - Product substitution issue [None]

NARRATIVE: CASE EVENT DATE: 20180112
